FAERS Safety Report 4279559-3 (Version None)
Quarter: 2004Q1

REPORT INFORMATION
  Report Type: 
  Country: None (occurrence: None)
  Receive Date: 20040123
  Receipt Date: 20040119
  Transmission Date: 20041129
  Serious: Yes (Other)
  Sender: FDA-Public Use
  Company Number: 2004-01-0968

PATIENT
  Sex: Male

DRUGS (1)
  1. BOOTS HAYFEVER RELIEF (LORATADINE) TABLETS LIKE CLARITIN [Suspect]
     Indication: DRUG USE FOR UNKNOWN INDICATION
     Dosage: 10 MG ORAL
     Route: 048

REACTIONS (2)
  - BIOPSY LIVER [None]
  - ILL-DEFINED DISORDER [None]
